FAERS Safety Report 6202772-2 (Version None)
Quarter: 2009Q2

REPORT INFORMATION
  Report Type: 
  Country: None (occurrence: None)
  Receive Date: 20090520
  Receipt Date: 20090508
  Transmission Date: 20091009
  Serious: Yes (Hospitalization, Other)
  Sender: FDA-Public Use
  Company Number: DSM-2009-00647

PATIENT
  Age: 92 Year
  Sex: Female
  Weight: 84 kg

DRUGS (1)
  1. OLMETEC HCTZ 20/12.5 (HYDROCHLOROTHIAZIDE, OLMESARTAN MEDOXOMIL) (TABL [Suspect]
     Indication: HYPERTENSION
     Dosage: 20/12.5 MG, ORAL
     Route: 048
     Dates: start: 20070223, end: 20070724

REACTIONS (3)
  - DIZZINESS [None]
  - FALL [None]
  - HYPONATRAEMIA [None]
